FAERS Safety Report 16262198 (Version 1)
Quarter: 2019Q2

REPORT INFORMATION
  Report Type: Spontaneous
  Country: KR (occurrence: KR)
  Receive Date: 20190501
  Receipt Date: 20190501
  Transmission Date: 20190711
  Serious: Yes (Life-Threatening, Hospitalization, Other)
  Sender: FDA-Public Use
  Company Number: KR-BAUSCH-BL-2019-012228

PATIENT
  Age: 55 Year
  Sex: Male

DRUGS (18)
  1. BROMOCRIPTINE MESILATE [Suspect]
     Active Substance: BROMOCRIPTINE
     Dosage: GRADUALLY TAPERED OVER 3 DAYS
     Route: 065
  2. TIANEPTINE SODIUM [Suspect]
     Active Substance: TIANEPTINE SODIUM
     Indication: LOSS OF PERSONAL INDEPENDENCE IN DAILY ACTIVITIES
     Route: 065
  3. METHYLPHENIDATE HYDROCHLORIDE. [Suspect]
     Active Substance: METHYLPHENIDATE HYDROCHLORIDE
     Dosage: INITIATED AT A LOW DOSAGE
     Route: 065
  4. VENLAFAXINE [Suspect]
     Active Substance: VENLAFAXINE HYDROCHLORIDE
     Route: 065
  5. BROMOCRIPTINE MESILATE [Suspect]
     Active Substance: BROMOCRIPTINE
     Route: 065
  6. ROPINIROLE. [Suspect]
     Active Substance: ROPINIROLE
     Dosage: GRADUALLY TAPERED OVER 3 DAYS
     Route: 065
  7. CARBIDOPA/LEVODOPA [Suspect]
     Active Substance: CARBIDOPA\LEVODOPA
     Dosage: 75/750 MG
     Route: 065
  8. CARBIDOPA/LEVODOPA [Suspect]
     Active Substance: CARBIDOPA\LEVODOPA
     Dosage: GRADUALLY TAPERED OVER 3 DAYS
     Route: 065
  9. TIANEPTINE SODIUM [Suspect]
     Active Substance: TIANEPTINE SODIUM
     Dosage: INITIATED AT A LOW DOSAGE
     Route: 065
  10. TIANEPTINE SODIUM [Suspect]
     Active Substance: TIANEPTINE SODIUM
     Dosage: GRADUALLY TAPERED OVER 3 DAYS
     Route: 065
  11. CARBIDOPA/LEVODOPA [Suspect]
     Active Substance: CARBIDOPA\LEVODOPA
     Indication: LOSS OF PERSONAL INDEPENDENCE IN DAILY ACTIVITIES
     Dosage: INITIATED AT A LOW DOSAGE
     Route: 065
  12. VENLAFAXINE [Suspect]
     Active Substance: VENLAFAXINE HYDROCHLORIDE
     Indication: LOSS OF PERSONAL INDEPENDENCE IN DAILY ACTIVITIES
     Dosage: INITIATED AT A LOW DOSAGE
     Route: 065
  13. VENLAFAXINE [Suspect]
     Active Substance: VENLAFAXINE HYDROCHLORIDE
     Dosage: GRADUALLY TAPERED OVER 3 DAYS
     Route: 065
  14. ROPINIROLE. [Suspect]
     Active Substance: ROPINIROLE
     Route: 065
  15. METHYLPHENIDATE HYDROCHLORIDE. [Suspect]
     Active Substance: METHYLPHENIDATE HYDROCHLORIDE
     Dosage: GRADUALLY TAPERED OVER 3 DAYS
     Route: 065
  16. ROPINIROLE. [Suspect]
     Active Substance: ROPINIROLE
     Indication: LOSS OF PERSONAL INDEPENDENCE IN DAILY ACTIVITIES
     Dosage: INITIATED AT A LOW DOSAGE
     Route: 065
  17. METHYLPHENIDATE HYDROCHLORIDE. [Suspect]
     Active Substance: METHYLPHENIDATE HYDROCHLORIDE
     Indication: LOSS OF PERSONAL INDEPENDENCE IN DAILY ACTIVITIES
     Route: 065
  18. BROMOCRIPTINE MESILATE [Suspect]
     Active Substance: BROMOCRIPTINE
     Indication: LOSS OF PERSONAL INDEPENDENCE IN DAILY ACTIVITIES
     Dosage: INITIATED AT A LOW DOSAGE
     Route: 065

REACTIONS (3)
  - Stress cardiomyopathy [Recovered/Resolved]
  - Cardiac dysfunction [Recovered/Resolved]
  - Serotonin syndrome [Recovered/Resolved]
